FAERS Safety Report 8738296 (Version 2)
Quarter: 2013Q4

REPORT INFORMATION
  Report Type: Spontaneous
  Country: US (occurrence: US)
  Receive Date: 20120823
  Receipt Date: 20131101
  Transmission Date: 20140711
  Serious: No
  Sender: FDA-Public Use
  Company Number: US-009507513-1207USA012044

PATIENT
  Sex: Female

DRUGS (4)
  1. DULERA [Suspect]
  2. ALBUTEROL [Suspect]
     Route: 055
  3. ROFLUMILAST [Suspect]
  4. COMBIVENT [Suspect]

REACTIONS (3)
  - Drug ineffective [Unknown]
  - Bronchitis [Unknown]
  - Pyrexia [Unknown]
